FAERS Safety Report 12604707 (Version 3)
Quarter: 2020Q2

REPORT INFORMATION
  Report Type: Spontaneous
  Country: CN (occurrence: CN)
  Receive Date: 20160728
  Receipt Date: 20200504
  Transmission Date: 20200713
  Serious: Yes (Life-Threatening, Hospitalization)
  Sender: FDA-Public Use
  Company Number: CN-BAUSCH-BL-2016-018002

PATIENT
  Age: 28 Year
  Sex: Female
  Weight: 56 kg

DRUGS (1)
  1. ENALAPRIL [Suspect]
     Active Substance: ENALAPRIL
     Indication: SUICIDE ATTEMPT
     Dosage: 700 TABLETS
     Route: 048

REACTIONS (6)
  - Pleural effusion [Recovering/Resolving]
  - Hypotension [Recovering/Resolving]
  - Overdose [Unknown]
  - Suicide attempt [Recovered/Resolved]
  - Toxicity to various agents [Recovering/Resolving]
  - Pulmonary oedema [Recovering/Resolving]
